FAERS Safety Report 7904118-8 (Version None)
Quarter: 2011Q4

REPORT INFORMATION
  Report Type: 
  Country: None (occurrence: None)
  Receive Date: 20111109
  Receipt Date: 20111103
  Transmission Date: 20120403
  Serious: Yes (Death, Life-Threatening, Hospitalization)
  Sender: FDA-Public Use
  Company Number: GB-CELGENEUS-167-C5013-11012975

PATIENT
  Sex: Male
  Weight: 86.4 kg

DRUGS (11)
  1. INFUMORPH [Concomitant]
     Route: 048
     Dates: end: 20110205
  2. PREDNISONE [Suspect]
     Indication: PROSTATE CANCER
     Dosage: 10 MILLIGRAM
     Route: 065
     Dates: start: 20101001
  3. ENOXAPARIN [Concomitant]
     Indication: THROMBOSIS PROPHYLAXIS
     Route: 065
  4. OMEPRAZOLE [Concomitant]
     Dosage: 40 MILLIGRAM
     Route: 048
     Dates: end: 20110205
  5. DOCETAXEL [Suspect]
     Indication: PROSTATE CANCER
     Route: 065
     Dates: start: 20101001
  6. LENALIDOMIDE [Suspect]
     Indication: PROSTATE CANCER
     Route: 048
     Dates: start: 20101001
  7. DOCETAXEL [Suspect]
     Dosage: 120 MILLIGRAM
     Route: 065
     Dates: start: 20110125
  8. FERROUS FUMARATE [Concomitant]
     Route: 048
     Dates: end: 20110205
  9. PREDNISONE [Suspect]
     Dosage: 10 MILLIGRAM
     Route: 065
     Dates: start: 20110125
  10. INDORAMIN [Concomitant]
     Indication: HYPERTENSION
     Route: 048
     Dates: end: 20110205
  11. METOCLOPRAMIDE [Concomitant]
     Indication: ANTIEMETIC SUPPORTIVE CARE
     Route: 048
     Dates: end: 20110204

REACTIONS (14)
  - PLEURAL EFFUSION [None]
  - PROSTATE CANCER METASTATIC [None]
  - PULMONARY EMBOLISM [None]
  - DYSPNOEA [None]
  - BLOOD ALBUMIN DECREASED [None]
  - NEUTROPENIA [None]
  - LUNG NEOPLASM [None]
  - METASTASES TO LUNG [None]
  - BONE LESION [None]
  - LOWER RESPIRATORY TRACT INFECTION [None]
  - HAEMOGLOBIN DECREASED [None]
  - METASTASES TO BONE [None]
  - PULMONARY CAVITATION [None]
  - PULMONARY INFARCTION [None]
